FAERS Safety Report 6836268-1 (Version None)
Quarter: 2010Q2

REPORT INFORMATION
  Report Type: 
  Country: None (occurrence: None)
  Receive Date: 20100624
  Receipt Date: 20100326
  Transmission Date: 20101027
  Serious: No
  Sender: FDA-Public Use
  Company Number: DKLU1060578

PATIENT
  Age: 6 Year
  Sex: Female

DRUGS (3)
  1. SABRIL [Suspect]
     Indication: DRUG USE FOR UNKNOWN INDICATION
  2. LAMICTAL [Concomitant]
  3. TEGRETOL [Concomitant]

REACTIONS (1)
  - FLUSHING [None]
